FAERS Safety Report 9239979 (Version 1)
Quarter: 2013Q2

REPORT INFORMATION
  Report Type: Spontaneous
  Country: US (occurrence: US)
  Receive Date: 20130418
  Receipt Date: 20130418
  Transmission Date: 20140414
  Serious: Yes (Other)
  Sender: FDA-Public Use
  Company Number: US-GLAXOSMITHKLINE-A1019844A

PATIENT
  Sex: Female

DRUGS (10)
  1. ADVAIR [Suspect]
     Indication: ASTHMA
     Dosage: 1PUFF TWICE PER DAY
     Route: 055
     Dates: start: 2001
  2. FLUTICASONE NASAL SPRAY [Concomitant]
  3. SINGULAIR [Concomitant]
  4. ALBUTEROL [Concomitant]
  5. DYAZIDE [Concomitant]
  6. GLUCOSAMINE [Concomitant]
  7. VITAMIN D [Concomitant]
  8. MULTIVITAMINS [Concomitant]
  9. KLONOPIN [Concomitant]
  10. AMITRIPTYLINE [Concomitant]

REACTIONS (9)
  - Lung infection [Unknown]
  - Oral candidiasis [Not Recovered/Not Resolved]
  - Stomatitis [Not Recovered/Not Resolved]
  - Pulmonary mass [Not Recovered/Not Resolved]
  - Oesophageal pain [Not Recovered/Not Resolved]
  - Pharyngeal erythema [Not Recovered/Not Resolved]
  - Drug ineffective [Not Recovered/Not Resolved]
  - Drug administration error [Not Recovered/Not Resolved]
  - Forced expiratory volume abnormal [Unknown]
